FAERS Safety Report 4938776-7 (Version None)
Quarter: 2006Q1

REPORT INFORMATION
  Report Type: 
  Country: None (occurrence: None)
  Receive Date: 20060309
  Receipt Date: 20050128
  Transmission Date: 20060701
  Serious: Yes (Death, Hospitalization)
  Sender: FDA-Public Use
  Company Number: FR-ABBOTT-05P-056-0288987-01

PATIENT
  Sex: Male

DRUGS (18)
  1. RITONAVIR SOFT GELATIN CAPSULES [Suspect]
     Indication: HIV INFECTION
     Route: 048
     Dates: start: 20040123, end: 20041230
  2. RITONAVIR SOFT GELATIN CAPSULES [Suspect]
     Route: 048
     Dates: start: 20050112, end: 20050719
  3. RITONAVIR SOFT GELATIN CAPSULES [Suspect]
     Route: 048
     Dates: start: 20050728, end: 20051103
  4. TIPRANAVIR [Concomitant]
     Indication: HIV INFECTION
     Route: 048
     Dates: start: 20040123, end: 20041230
  5. TIPRANAVIR [Concomitant]
     Route: 048
     Dates: start: 20050112, end: 20050719
  6. TIPRANAVIR [Concomitant]
     Route: 048
     Dates: start: 20050728, end: 20051103
  7. INSULIN INITARD NORDISK [Concomitant]
     Indication: DIABETES MELLITUS INSULIN-DEPENDENT
     Route: 058
     Dates: start: 19960101, end: 20041222
  8. INSULIN HUMAN ZINC SUSPENSION [Concomitant]
     Indication: DIABETES MELLITUS INSULIN-DEPENDENT
     Route: 058
     Dates: start: 20041222, end: 20051229
  9. LAMIVUDINE + ZIDOVUDINE [Concomitant]
     Indication: HIV INFECTION
     Route: 048
     Dates: end: 20051103
  10. ABACAVIR SULFATE [Concomitant]
     Indication: HIV INFECTION
     Route: 048
     Dates: end: 20051103
  11. FUZEON [Concomitant]
     Indication: HIV INFECTION
     Route: 058
     Dates: end: 20050701
  12. VALACYCLOVIR HCL [Concomitant]
     Indication: DRUG USE FOR UNKNOWN INDICATION
     Route: 048
  13. FLUCONAZOLE [Concomitant]
     Indication: CANDIDIASIS
     Route: 048
     Dates: start: 20041101
  14. BACTRIM [Concomitant]
     Indication: DRUG USE FOR UNKNOWN INDICATION
     Route: 048
  15. AZITHROMYCIN [Concomitant]
     Indication: DRUG USE FOR UNKNOWN INDICATION
     Route: 048
  16. GABAPENTIN [Concomitant]
     Indication: DRUG USE FOR UNKNOWN INDICATION
     Route: 048
  17. VFEND [Concomitant]
     Indication: DRUG USE FOR UNKNOWN INDICATION
     Dates: start: 20041230, end: 20050112
  18. ENFUVIRTIDE [Concomitant]
     Indication: DRUG USE FOR UNKNOWN INDICATION
     Route: 058
     Dates: end: 20050701

REACTIONS (18)
  - ANAEMIA [None]
  - BACK PAIN [None]
  - CLOSTRIDIUM COLITIS [None]
  - CYTOMEGALOVIRUS OESOPHAGITIS [None]
  - DIARRHOEA [None]
  - GENERAL PHYSICAL HEALTH DETERIORATION [None]
  - KAPOSI'S SARCOMA [None]
  - KLEBSIELLA SEPSIS [None]
  - NEUROPATHY PERIPHERAL [None]
  - OEDEMA PERIPHERAL [None]
  - OESOPHAGEAL CANDIDIASIS [None]
  - PENIS DISORDER [None]
  - POST LUMBAR PUNCTURE SYNDROME [None]
  - PSEUDOMONAL SEPSIS [None]
  - PYREXIA [None]
  - SEPSIS [None]
  - VOMITING [None]
  - WEIGHT DECREASED [None]
